FAERS Safety Report 9156760 (Version 1)
Quarter: 2013Q1

REPORT INFORMATION
  Report Type: Spontaneous
  Country: US (occurrence: None)
  Receive Date: 20130308
  Receipt Date: 20130308
  Transmission Date: 20140127
  Serious: Yes (Other)
  Sender: FDA-Public Use
  Company Number: None

PATIENT
  Sex: Female
  Weight: 66.68 kg

DRUGS (3)
  1. BALZIVA [Suspect]
     Indication: CONTRACEPTION
  2. BALZIVA [Suspect]
  3. KARIVA [Suspect]

REACTIONS (1)
  - No adverse event [None]
